FAERS Safety Report 13665122 (Version 1)
Quarter: 2017Q2

REPORT INFORMATION
  Report Type: Spontaneous
  Country: US (occurrence: US)
  Receive Date: 20170619
  Receipt Date: 20170619
  Transmission Date: 20170830
  Serious: Yes (Life-Threatening)
  Sender: FDA-Public Use
  Company Number: None

PATIENT
  Age: 40 Year
  Sex: Male
  Weight: 93.85 kg

DRUGS (1)
  1. IOPROMIDE [Suspect]
     Active Substance: IOPROMIDE
     Indication: SURGERY
     Dates: start: 20170410, end: 20170410

REACTIONS (2)
  - Contrast media reaction [None]
  - Anaphylactic reaction [None]

NARRATIVE: CASE EVENT DATE: 20170410
